FAERS Safety Report 21891861 (Version 6)
Quarter: 2023Q2

REPORT INFORMATION
  Report Type: Report from Study
  Country: PH (occurrence: None)
  Receive Date: 20230120
  Receipt Date: 20230404
  Transmission Date: 20230721
  Serious: Yes (Other)
  Sender: FDA-Public Use
  Company Number: PH-Eisai Medical Research-EC-2023-132078

PATIENT
  Age: 62 Year
  Sex: Male
  Weight: 66 kg

DRUGS (8)
  1. LENVATINIB [Suspect]
     Active Substance: LENVATINIB
     Indication: Clear cell renal cell carcinoma
     Route: 048
     Dates: start: 20221117, end: 20221203
  2. PEMBROLIZUMAB [Suspect]
     Active Substance: PEMBROLIZUMAB
     Indication: Clear cell renal cell carcinoma
     Route: 041
     Dates: start: 20221117, end: 20221117
  3. BELZUTIFAN [Suspect]
     Active Substance: BELZUTIFAN
     Indication: Clear cell renal cell carcinoma
     Route: 048
     Dates: start: 20221117, end: 20221203
  4. VITAMINS NOS [Concomitant]
     Active Substance: VITAMINS
     Dates: start: 20221116
  5. CLONIDINE [Concomitant]
     Active Substance: CLONIDINE
     Dates: start: 20221124, end: 20221124
  6. AMLODIPINE [Concomitant]
     Active Substance: AMLODIPINE BESYLATE
     Dates: start: 20221124
  7. LOSARTAN [Concomitant]
     Active Substance: LOSARTAN
     Dates: start: 20221201, end: 20221203
  8. CETIRIZINE HYDROCHLORIDE [Concomitant]
     Active Substance: CETIRIZINE HYDROCHLORIDE
     Dates: start: 20221202, end: 20221204

REACTIONS (1)
  - Stevens-Johnson syndrome [Recovered/Resolved]

NARRATIVE: CASE EVENT DATE: 20221203
